FAERS Safety Report 18499209 (Version 1)
Quarter: 2020Q4

REPORT INFORMATION
  Report Type: Spontaneous
  Country: CN (occurrence: CN)
  Receive Date: 20201112
  Receipt Date: 20201112
  Transmission Date: 20210114
  Serious: Yes (Other)
  Sender: FDA-Public Use
  Company Number: CN-ELI_LILLY_AND_COMPANY-CN202011005205

PATIENT
  Age: 48 Year
  Sex: Female

DRUGS (4)
  1. APATINIB MESYLATE [Suspect]
     Active Substance: APATINIB
     Indication: SEROUS CYSTADENOCARCINOMA OVARY
     Dosage: 500 MG, DAILY
     Route: 048
  2. PEMETREXED. [Suspect]
     Active Substance: PEMETREXED
     Indication: SEROUS CYSTADENOCARCINOMA OVARY
     Dosage: 500 MG/M2, CYCLICAL
     Route: 042
  3. LOBAPLATIN [Suspect]
     Active Substance: LOBAPLATIN
     Indication: SEROUS CYSTADENOCARCINOMA OVARY
     Dosage: 30 MG, CYCLICAL
     Route: 065
  4. VITAMIN B12 + FOLIC ACID [Concomitant]
     Active Substance: CYANOCOBALAMIN\FOLIC ACID
     Indication: PREMEDICATION

REACTIONS (4)
  - Secondary hypertension [Unknown]
  - Gastrointestinal perforation [Unknown]
  - Palmar-plantar erythrodysaesthesia syndrome [Unknown]
  - Proteinuria [Unknown]
